FAERS Safety Report 5133857-X (Version None)
Quarter: 2006Q4

REPORT INFORMATION
  Report Type: 
  Country: None (occurrence: None)
  Receive Date: 20061018
  Receipt Date: 20060927
  Transmission Date: 20070319
  Serious: No
  Sender: FDA-Public Use
  Company Number: US200609007041

PATIENT
  Sex: Female

DRUGS (3)
  1. CYMBALTA [Suspect]
     Indication: FIBROMYALGIA
     Dates: start: 20050101, end: 20050101
  2. CELEBREX [Concomitant]
  3. BUSPAR (AUS/ (BUSPIRONE HYDROCHLORIDE) [Concomitant]

REACTIONS (1)
  - LIVER FUNCTION TEST ABNORMAL [None]
